FAERS Safety Report 4451563-1 (Version None)
Quarter: 2004Q3

REPORT INFORMATION
  Report Type: 
  Country: None (occurrence: None)
  Receive Date: 20040915
  Receipt Date: 20040902
  Transmission Date: 20050211
  Serious: Yes (Hospitalization)
  Sender: FDA-Public Use
  Company Number: K200401350

PATIENT
  Age: 83 Year
  Sex: Male

DRUGS (6)
  1. SKELAXIN [Suspect]
     Indication: BACK PAIN
     Dosage: 400 MG, Q 8 TO 12 HOURS, PRN, ORAL
     Route: 048
  2. DURAGESIC [Suspect]
     Indication: PAIN
     Dosage: 75 UG/HR Q 72 HOURS, TRANSDERMAL
     Route: 062
     Dates: start: 20031001
  3. PROPRANOLOL [Concomitant]
  4. HYDROCODONE [Concomitant]
  5. ZESTRIL [Concomitant]
  6. ZOCOR [Concomitant]

REACTIONS (8)
  - ANXIETY [None]
  - BALANCE DISORDER [None]
  - CHILLS [None]
  - DIARRHOEA [None]
  - DIZZINESS [None]
  - FALL [None]
  - NAUSEA [None]
  - VOMITING [None]
